FAERS Safety Report 9344757 (Version 1)
Quarter: 2013Q2

REPORT INFORMATION
  Report Type: Spontaneous
  Country: US (occurrence: US)
  Receive Date: 20130612
  Receipt Date: 20130612
  Transmission Date: 20140414
  Serious: Yes (Hospitalization)
  Sender: FDA-Public Use
  Company Number: US-GLAXOSMITHKLINE-A0837849A

PATIENT
  Age: 57 Year
  Sex: Male

DRUGS (4)
  1. AVANDIA [Suspect]
     Indication: DIABETES MELLITUS
     Dosage: 4MG PER DAY
     Route: 048
     Dates: start: 20050701, end: 20070901
  2. GLUCOVANCE [Concomitant]
  3. LISINOPRIL [Concomitant]
  4. TOPROL XL [Concomitant]

REACTIONS (4)
  - Coronary artery disease [Not Recovered/Not Resolved]
  - Myocardial infarction [Unknown]
  - Dyspepsia [Unknown]
  - Dyspnoea [Unknown]
